FAERS Safety Report 21578072 (Version 1)
Quarter: 2022Q4

REPORT INFORMATION
  Report Type: Other
  Country: FR (occurrence: None)
  Receive Date: 20221110
  Receipt Date: 20221110
  Transmission Date: 20230113
  Serious: Yes (Death, Hospitalization)
  Sender: FDA-Public Use
  Company Number: FR-ROCHE-3216230

PATIENT
  Age: 59 Year
  Sex: Male

DRUGS (5)
  1. MYCOPHENOLATE MOFETIL [Suspect]
     Active Substance: MYCOPHENOLATE MOFETIL
     Indication: Prophylaxis against transplant rejection
     Route: 065
  2. TACROLIMUS [Suspect]
     Active Substance: TACROLIMUS
     Indication: Prophylaxis against transplant rejection
     Route: 065
  3. TOCILIZUMAB [Suspect]
     Active Substance: TOCILIZUMAB
     Indication: COVID-19
     Dosage: ONCE
     Route: 042
  4. TOCILIZUMAB [Suspect]
     Active Substance: TOCILIZUMAB
     Indication: Cytokine storm
  5. OXYGEN [Concomitant]
     Active Substance: OXYGEN
     Indication: COVID-19

REACTIONS (8)
  - COVID-19 [Unknown]
  - Cytokine storm [Recovering/Resolving]
  - Off label use [Unknown]
  - Pneumonia [Fatal]
  - Klebsiella infection [Unknown]
  - Aspergillus infection [Unknown]
  - Mucormycosis [Unknown]
  - Staphylococcal infection [Unknown]
